FAERS Safety Report 9510990 (Version 1)
Quarter: 2013Q3

REPORT INFORMATION
  Report Type: Spontaneous
  Country: US (occurrence: None)
  Receive Date: 20130909
  Receipt Date: 20130909
  Transmission Date: 20140515
  Serious: Yes (Death)
  Sender: FDA-Public Use
  Company Number: None

PATIENT
  Age: 69 Year
  Sex: Male

DRUGS (21)
  1. PROMACTA 25 MG GLAXO SMITHKLINE [Suspect]
     Indication: HEPATITIS C
     Route: 048
     Dates: start: 201304, end: 201308
  2. LAMIVUDINE [Concomitant]
  3. PEG-IFN [Concomitant]
  4. RIBAVIRIN [Concomitant]
  5. PREDNISONE [Concomitant]
  6. MYCOPHENOLATE [Concomitant]
  7. CYCLOSPORINE [Concomitant]
  8. AMLODIPINE [Concomitant]
  9. METOPROLOL [Concomitant]
  10. LOSARTAN [Concomitant]
  11. FUROSEMIDE [Concomitant]
  12. INSULIN [Concomitant]
  13. ALLOPURINOL [Concomitant]
  14. PRAZOSIN [Concomitant]
  15. FAMOTIDINE [Concomitant]
  16. MEGESTROL [Concomitant]
  17. DOXEPIN [Concomitant]
  18. MG OXIDE [Concomitant]
  19. ZN SULFATE [Concomitant]
  20. FERROUS SULFATE [Concomitant]
  21. ERGOCALCIFEROL [Concomitant]

REACTIONS (11)
  - Sepsis [None]
  - Blister [None]
  - Thermal burn [None]
  - Rhabdomyolysis [None]
  - Lobar pneumonia [None]
  - Acute respiratory distress syndrome [None]
  - Metabolic acidosis [None]
  - Tachycardia [None]
  - Hypotension [None]
  - Disseminated intravascular coagulation [None]
  - Tachypnoea [None]
